FAERS Safety Report 5655106-6 (Version None)
Quarter: 2008Q1

REPORT INFORMATION
  Report Type: 
  Country: None (occurrence: None)
  Receive Date: 20080307
  Receipt Date: 20071205
  Transmission Date: 20080703
  Serious: No
  Sender: FDA-Public Use
  Company Number: A0698660A

PATIENT
  Age: 52 Year
  Sex: Male

DRUGS (4)
  1. REQUIP [Suspect]
     Indication: RESTLESS LEGS SYNDROME
     Route: 048
     Dates: start: 20050101
  2. LAMICTAL [Concomitant]
     Indication: RESTLESS LEGS SYNDROME
     Dosage: 100MG TWICE PER DAY
     Route: 048
  3. GABAPENTIN [Concomitant]
     Indication: RESTLESS LEGS SYNDROME
     Dosage: 300MG TWICE PER DAY
     Route: 048
  4. CLONAZEPAM [Concomitant]
     Dosage: 2.5MG AT NIGHT
     Route: 048

REACTIONS (6)
  - ANXIETY [None]
  - FATIGUE [None]
  - HEADACHE [None]
  - MIDDLE INSOMNIA [None]
  - QUALITY OF LIFE DECREASED [None]
  - THERAPEUTIC RESPONSE DECREASED [None]
